FAERS Safety Report 10151968 (Version 2)
Quarter: 2014Q2

REPORT INFORMATION
  Report Type: Spontaneous
  Country: AU (occurrence: AU)
  Receive Date: 20140505
  Receipt Date: 20140515
  Transmission Date: 20141212
  Serious: Yes (Other)
  Sender: FDA-Public Use
  Company Number: AU-JNJFOC-20140417420

PATIENT
  Age: 31 Year
  Sex: Male
  Weight: 111.5 kg

DRUGS (2)
  1. STELARA [Suspect]
     Indication: PSORIASIS
     Dosage: FIRST DOSE
     Route: 058
     Dates: start: 20140402
  2. STELARA [Suspect]
     Indication: PSORIASIS
     Route: 058

REACTIONS (5)
  - Uveitis [Recovering/Resolving]
  - Hyperhidrosis [Unknown]
  - Myalgia [Recovering/Resolving]
  - Headache [Recovering/Resolving]
  - Pyrexia [Recovering/Resolving]
